FAERS Safety Report 18565434 (Version 1)
Quarter: 2020Q4

REPORT INFORMATION
  Report Type: Spontaneous
  Country: US (occurrence: US)
  Receive Date: 20201201
  Receipt Date: 20201201
  Transmission Date: 20210114
  Serious: No
  Sender: FDA-Public Use
  Company Number: None

PATIENT
  Age: 72 Year
  Sex: Female
  Weight: 105.16 kg

DRUGS (22)
  1. MAGNESIUM AMINO ACID CHELATE 500MG, ORAL [Concomitant]
  2. METOPROLOL TARTRATE 25MG, ORAL [Concomitant]
  3. ACETAMINOPHEN 325MG, ORAL [Concomitant]
  4. VITAMIN C 500MG, ORAL [Concomitant]
  5. LEVOTHYROXINE SODIUM 100MCG, ORAL [Concomitant]
  6. PERJETA 420MG/14ML, IV [Concomitant]
  7. CAPECITABINE. [Suspect]
     Active Substance: CAPECITABINE
     Indication: BREAST CANCER FEMALE
     Route: 048
     Dates: start: 20200930
  8. B COMPLEX VITAMINS, ORAL [Concomitant]
  9. COQ10 200MG, ORAL [Concomitant]
  10. FLUVESTRANT 250MG/5ML IM [Concomitant]
  11. WARFARIN SODIUM 5 MG, ORAL [Concomitant]
  12. OMEGA 3 1000MG, ORAL [Concomitant]
  13. HERCEPTIN 44MG, IV [Concomitant]
  14. VITAMIN B6 100MG, ORAL [Concomitant]
  15. IMODIUM A-D 2MG, ORAL [Concomitant]
  16. CALCIUM CARBONATE ANTACID 500MG, ORAL [Concomitant]
  17. ONDANSETRON 4MG, ORAL [Concomitant]
  18. KLOR-CON M10 10MEQ, ORAL [Concomitant]
  19. POTASSIUM CHLORIDE ER 10 MEQ, ORAL [Concomitant]
  20. XGEVA 120 MG/1.7ML, SC [Concomitant]
  21. ROSUVASTATIN CALCIUM 20MG,ORAL [Concomitant]
  22. SUCRALFATE 1GM, ORAL [Concomitant]

REACTIONS (1)
  - Pain in extremity [None]

NARRATIVE: CASE EVENT DATE: 20201130
